FAERS Safety Report 15076422 (Version 1)
Quarter: 2018Q2

REPORT INFORMATION
  Report Type: Spontaneous
  Country: CA (occurrence: CA)
  Receive Date: 20180627
  Receipt Date: 20180627
  Transmission Date: 20180711
  Serious: Yes (Hospitalization)
  Sender: FDA-Public Use
  Company Number: CA-CELLTRION INC.-2018CA020209

PATIENT

DRUGS (7)
  1. INFLECTRA [Suspect]
     Active Substance: INFLIXIMAB-DYYB
     Dosage: 625 MG/ CYCLIC 0,2,6 WEEKS, THEN EVERY 8 WEEKS
     Route: 042
     Dates: start: 20180517
  2. SYNTHROID [Concomitant]
     Active Substance: LEVOTHYROXINE SODIUM
     Dosage: UNK
  3. INFLECTRA [Suspect]
     Active Substance: INFLIXIMAB-DYYB
     Dosage: 10 MG/KG, CYCLIC (WEEKS 0, 2, 6 THEN EVERY 8 WEEKS)
     Route: 042
     Dates: start: 20180614
  4. ASA [Concomitant]
     Active Substance: ASPIRIN
  5. IRON [Concomitant]
     Active Substance: IRON
     Dosage: UNK
  6. TIAZAC [Concomitant]
     Active Substance: DILTIAZEM HYDROCHLORIDE
     Dosage: UNK
  7. INFLECTRA [Suspect]
     Active Substance: INFLIXIMAB-DYYB
     Indication: COLITIS ULCERATIVE
     Dosage: 10 MG/KG, CYCLIC (WEEKS 0, 2, 6 THEN EVERY 8 WEEKS)
     Route: 042
     Dates: start: 20180504

REACTIONS (8)
  - Prescribed overdose [Unknown]
  - Oropharyngeal pain [Unknown]
  - Pneumonia [Recovered/Resolved]
  - Blood pressure fluctuation [Unknown]
  - Faeces soft [Unknown]
  - Cough [Unknown]
  - Weight increased [Unknown]
  - Sputum abnormal [Unknown]

NARRATIVE: CASE EVENT DATE: 20180504
